FAERS Safety Report 14596140 (Version 2)
Quarter: 2018Q1

REPORT INFORMATION
  Report Type: Spontaneous
  Country: JP (occurrence: JP)
  Receive Date: 20180303
  Receipt Date: 20180304
  Transmission Date: 20180509
  Serious: Yes (Death, Other)
  Sender: FDA-Public Use
  Company Number: JP-CIPLA LTD.-2016JP13125

PATIENT

DRUGS (3)
  1. EVEROLIMUS. [Suspect]
     Active Substance: EVEROLIMUS
     Indication: OVARIAN CLEAR CELL CARCINOMA
     Dosage: 10 MG/ DAY ON DAYS 1-28, A 28-DAY PERIOD COMPRISED ONE CYCLE
     Route: 048
  2. GEMCITABINE [Suspect]
     Active Substance: GEMCITABINE\GEMCITABINE HYDROCHLORIDE
     Indication: OVARIAN CLEAR CELL CARCINOMA
     Dosage: UNK
     Route: 065
  3. DOCETAXEL. [Suspect]
     Active Substance: DOCETAXEL
     Indication: OVARIAN CLEAR CELL CARCINOMA
     Dosage: UNK
     Route: 065

REACTIONS (6)
  - Anaemia [Unknown]
  - Stomatitis [Unknown]
  - Ovarian clear cell carcinoma [Fatal]
  - Malaise [Unknown]
  - Hypercholesterolaemia [Unknown]
  - Fatigue [Unknown]
